FAERS Safety Report 4359954-4 (Version None)
Quarter: 2004Q2

REPORT INFORMATION
  Report Type: 
  Country: None (occurrence: None)
  Receive Date: 20040513
  Receipt Date: 20040429
  Transmission Date: 20050107
  Serious: No
  Sender: FDA-Public Use
  Company Number: 2004UW09570

PATIENT
  Age: 55 Year
  Sex: Female
  Weight: 60.3284 kg

DRUGS (3)
  1. NEXIUM [Suspect]
     Indication: GASTROOESOPHAGEAL REFLUX DISEASE
     Dosage: 40 MG QD PO
     Route: 048
     Dates: start: 20020401, end: 20040422
  2. RHINOCORT [Suspect]
     Dates: start: 20040101
  3. AMOXICILLIN [Concomitant]

REACTIONS (7)
  - BLINDNESS UNILATERAL [None]
  - CARDIAC FAILURE [None]
  - COLOUR BLINDNESS [None]
  - HYPERTENSION [None]
  - OEDEMA PERIPHERAL [None]
  - RETINAL OEDEMA [None]
  - VISUAL FIELD DEFECT [None]
